FAERS Safety Report 4810563-X (Version None)
Quarter: 2005Q4

REPORT INFORMATION
  Report Type: 
  Country: None (occurrence: None)
  Receive Date: 20051025
  Receipt Date: 20051025
  Transmission Date: 20060501
  Serious: Yes (Death)
  Sender: FDA-Public Use
  Company Number: None

PATIENT
  Sex: Male
  Weight: 103 kg

DRUGS (5)
  1. HALOPERIDOL [Suspect]
     Indication: AGGRESSION
     Dosage: 10MG IM  5 MG IM
     Route: 030
     Dates: start: 20051012
  2. HALOPERIDOL [Suspect]
     Indication: AGITATION
     Dosage: 10MG IM  5 MG IM
     Route: 030
     Dates: start: 20051012
  3. ALCOHOL [Concomitant]
  4. SEROQUEL [Concomitant]
  5. KLONOPIN [Concomitant]

REACTIONS (4)
  - ANOXIC ENCEPHALOPATHY [None]
  - APNOEA [None]
  - CARDIAC ARREST [None]
  - SKIN DISCOLOURATION [None]
